FAERS Safety Report 11472512 (Version 2)
Quarter: 2015Q3

REPORT INFORMATION
  Report Type: Spontaneous
  Country: US (occurrence: US)
  Receive Date: 20150908
  Receipt Date: 20150910
  Transmission Date: 20151125
  Serious: Yes (Other)
  Sender: FDA-Public Use
  Company Number: US-SA-2015SA134092

PATIENT
  Age: 75 Year
  Sex: Female

DRUGS (1)
  1. ICY HOT (MENTHOL) [Suspect]
     Active Substance: MENTHOL
     Route: 065

REACTIONS (4)
  - Thermal burn [Unknown]
  - Bedridden [Unknown]
  - Activities of daily living impaired [Unknown]
  - Wound secretion [Unknown]

NARRATIVE: CASE EVENT DATE: 201508
